FAERS Safety Report 21884939 (Version 1)
Quarter: 2023Q1

REPORT INFORMATION
  Report Type: Spontaneous
  Country: US (occurrence: US)
  Receive Date: 20230119
  Receipt Date: 20230119
  Transmission Date: 20230418
  Serious: No
  Sender: FDA-Public Use
  Company Number: US-SUN PHARMACEUTICAL INDUSTRIES LTD-2022R1-366068

PATIENT
  Sex: Female

DRUGS (1)
  1. LEVULAN KERASTICK [Suspect]
     Active Substance: AMINOLEVULINIC ACID HYDROCHLORIDE
     Indication: Product used for unknown indication
     Dosage: APPLY ONE ENTIRE STICK TO FACE AND LET SIT FOR 90 MINUTES, REPEAT IN 4 WEEKS
     Route: 061

REACTIONS (3)
  - Erythema [Unknown]
  - Facial pain [Unknown]
  - Skin tightness [Unknown]
